FAERS Safety Report 14901534 (Version 2)
Quarter: 2018Q2

REPORT INFORMATION
  Report Type: Report from Study
  Country: GB (occurrence: US)
  Receive Date: 20180516
  Receipt Date: 20180529
  Transmission Date: 20180711
  Serious: Yes (Life-Threatening, Hospitalization)
  Sender: FDA-Public Use
  Company Number: GB-PFIZER INC-2018196084

PATIENT
  Sex: Female

DRUGS (2)
  1. CEFOTAXIME [Concomitant]
     Active Substance: CEFOTAXIME SODIUM
  2. MOXIFLOXACIN HCL [Suspect]
     Active Substance: MOXIFLOXACIN

REACTIONS (14)
  - Syncope [Unknown]
  - Angina pectoris [Unknown]
  - Loss of consciousness [Unknown]
  - Vomiting [Unknown]
  - Dizziness [Unknown]
  - Pain [Unknown]
  - Blood iron decreased [Unknown]
  - Transferrin saturation decreased [Unknown]
  - Electrocardiogram QT prolonged [Unknown]
  - Anaemia [Unknown]
  - Torsade de pointes [Unknown]
  - Arrhythmia [Unknown]
  - Pulmonary congestion [Unknown]
  - Nausea [Unknown]
